FAERS Safety Report 7262229-7 (Version None)
Quarter: 2011Q1

REPORT INFORMATION
  Report Type: 
  Country: None (occurrence: None)
  Receive Date: 20110130
  Receipt Date: 20101124
  Transmission Date: 20110831
  Serious: No
  Sender: FDA-Public Use
  Company Number: US-ABBOTT-10P-163-0687644-00

PATIENT
  Age: 41 Year
  Sex: Female

DRUGS (2)
  1. VITAMIN B-12 [Concomitant]
     Indication: PRODUCT USED FOR UNKNOWN INDICATION
     Dosage: MONTHY, ALSO AS REQUIRED AFTER LAB WORK
     Route: 050
  2. HUMIRA [Suspect]
     Indication: CROHN'S DISEASE
     Dates: start: 20101119

REACTIONS (4)
  - SOMNOLENCE [None]
  - INJECTION SITE PAIN [None]
  - SLUGGISHNESS [None]
  - FATIGUE [None]
